FAERS Safety Report 7207569-2 (Version None)
Quarter: 2011Q1

REPORT INFORMATION
  Report Type: 
  Country: None (occurrence: None)
  Receive Date: 20110103
  Receipt Date: 20101228
  Transmission Date: 20110831
  Serious: Yes (Other)
  Sender: FDA-Public Use
  Company Number: NL-ROXANE LABORATORIES, INC.-2010-RO-01726RO

PATIENT
  Age: 51 Year
  Sex: Female
  Weight: 80 kg

DRUGS (3)
  1. PANTOPRAZOLE [Suspect]
     Dosage: 20 MG
  2. METHOTREXATE [Suspect]
     Indication: PSORIASIS
  3. MIANSERIN [Suspect]
     Dosage: 30 MG

REACTIONS (2)
  - TIBIA FRACTURE [None]
  - OSTEOPENIA [None]
